FAERS Safety Report 18745977 (Version 1)
Quarter: 2021Q1

REPORT INFORMATION
  Report Type: Spontaneous
  Country: US (occurrence: US)
  Receive Date: 20210114
  Receipt Date: 20210114
  Transmission Date: 20210419
  Serious: Yes (Hospitalization)
  Sender: FDA-Public Use
  Company Number: None

PATIENT
  Age: 60 Year
  Sex: Male
  Weight: 73 kg

DRUGS (3)
  1. BAMLANIVIMAB. [Suspect]
     Active Substance: BAMLANIVIMAB
     Indication: COVID-19
     Route: 042
  2. DAPAGLIFLOZIN?METFORMIN HCL ER 5/1000MG [Concomitant]
     Dates: start: 20191202, end: 20210111
  3. AMLODIPINE 5MG?BENAZEPRIL 20MG [Concomitant]
     Dates: start: 20201209

REACTIONS (3)
  - Dyspnoea exertional [None]
  - Oxygen saturation decreased [None]
  - Lung infiltration [None]

NARRATIVE: CASE EVENT DATE: 20210110
